FAERS Safety Report 7356060-1 (Version None)
Quarter: 2011Q1

REPORT INFORMATION
  Report Type: 
  Country: None (occurrence: None)
  Receive Date: 20110310
  Receipt Date: 20110310
  Transmission Date: 20110831
  Serious: No
  Sender: FDA-Public Use
  Company Number: None

PATIENT
  Age: 55 Year
  Sex: Female
  Weight: 95.2554 kg

DRUGS (1)
  1. LEVAQUIN [Suspect]
     Indication: SINUSITIS
     Dates: start: 20100916, end: 20100923

REACTIONS (8)
  - IMPAIRED WORK ABILITY [None]
  - TENDON PAIN [None]
  - ARTHRALGIA [None]
  - PAIN IN EXTREMITY [None]
  - ABASIA [None]
  - PAIN [None]
  - QUALITY OF LIFE DECREASED [None]
  - ARTHRITIS [None]
